FAERS Safety Report 4263655-0 (Version None)
Quarter: 2004Q1

REPORT INFORMATION
  Report Type: 
  Country: None (occurrence: None)
  Receive Date: 20040102
  Receipt Date: 20031209
  Transmission Date: 20041129
  Serious: Yes (Other)
  Sender: FDA-Public Use
  Company Number: USA030536692

PATIENT
  Age: 84 Year
  Sex: Female

DRUGS (4)
  1. FORTEO [Suspect]
     Indication: OSTEOPOROSIS
     Dosage: 20 UG/DAY
     Dates: start: 20030601, end: 20030801
  2. LIPITOR [Concomitant]
  3. TUMS (CALCIUM CARBONATE) [Concomitant]
  4. ASPIRIN [Concomitant]

REACTIONS (10)
  - ACCIDENTAL NEEDLE STICK [None]
  - ARTHRALGIA [None]
  - BONE PAIN [None]
  - FALL [None]
  - INJECTION SITE HAEMORRHAGE [None]
  - MUSCULOSKELETAL STIFFNESS [None]
  - PAIN IN EXTREMITY [None]
  - PHARMACEUTICAL PRODUCT COMPLAINT [None]
  - RIB FRACTURE [None]
  - WRIST FRACTURE [None]
